FAERS Safety Report 22661323 (Version 1)
Quarter: 2023Q2

REPORT INFORMATION
  Report Type: Spontaneous
  Country: US (occurrence: US)
  Receive Date: 20230630
  Receipt Date: 20230630
  Transmission Date: 20230721
  Serious: Yes (Other)
  Sender: FDA-Public Use
  Company Number: US-HIKMA PHARMACEUTICALS USA INC.-US-H14001-23-02172

PATIENT

DRUGS (1)
  1. LITHIUM [Suspect]
     Active Substance: LITHIUM
     Dosage: UNK UNK, UNK
     Route: 065

REACTIONS (1)
  - Underdose [Unknown]
